FAERS Safety Report 6740474-4 (Version None)
Quarter: 2010Q2

REPORT INFORMATION
  Report Type: 
  Country: None (occurrence: None)
  Receive Date: 20100525
  Receipt Date: 20100518
  Transmission Date: 20101027
  Serious: Yes (Hospitalization, Other)
  Sender: FDA-Public Use
  Company Number: PHHO2010IT03805

PATIENT
  Sex: Female
  Weight: 45 kg

DRUGS (5)
  1. CERTICAN [Suspect]
     Indication: RENAL TRANSPLANT
     Dosage: 0.75 MG, BID
     Route: 048
     Dates: start: 20100213, end: 20100311
  2. CERTICAN [Suspect]
     Dosage: 1.75 MG, BID
     Route: 048
     Dates: start: 20100312
  3. NEORAL [Suspect]
     Indication: RENAL TRANSPLANT
     Dosage: 75 MG, BID
     Route: 048
     Dates: start: 20100213, end: 20100311
  4. NEORAL [Suspect]
     Dosage: 50 MG, BID
     Route: 048
     Dates: start: 20100312, end: 20100517
  5. STEROIDS NOS [Concomitant]

REACTIONS (6)
  - ANTIBODY TEST POSITIVE [None]
  - BLOOD CREATININE INCREASED [None]
  - BLOOD UREA INCREASED [None]
  - KIDNEY TRANSPLANT REJECTION [None]
  - RENAL IMPAIRMENT [None]
  - WEIGHT INCREASED [None]
